FAERS Safety Report 12695737 (Version 1)
Quarter: 2016Q3

REPORT INFORMATION
  Report Type: Spontaneous
  Country: US (occurrence: US)
  Receive Date: 20160829
  Receipt Date: 20160829
  Transmission Date: 20161109
  Serious: No
  Sender: FDA-Public Use
  Company Number: US-BAYER-2016-165388

PATIENT
  Age: 62 Year
  Sex: Male
  Weight: 95.25 kg

DRUGS (1)
  1. ALEVE [Suspect]
     Active Substance: NAPROXEN SODIUM
     Indication: BACK PAIN
     Dosage: 3 DF, BID
     Route: 048

REACTIONS (3)
  - Drug effect incomplete [Unknown]
  - Extra dose administered [Unknown]
  - Device ineffective [Unknown]

NARRATIVE: CASE EVENT DATE: 20160727
